FAERS Safety Report 9519652 (Version 1)
Quarter: 2013Q1

REPORT INFORMATION
  Report Type: Spontaneous
  Country: US (occurrence: None)
  Receive Date: 20130305
  Receipt Date: 20130305
  Transmission Date: 20140127
  Serious: Yes (Hospitalization)
  Sender: FDA-Public Use
  Company Number: 163-21880-12010887

PATIENT
  Age: 80 Year
  Sex: Male

DRUGS (6)
  1. REVLIMID [Suspect]
     Indication: B-CELL LYMPHOMA
     Dosage: 25 MG, DAILY X 21 DAYS ON FOLLOWED X 7 DAYS OFF, PO
     Route: 048
     Dates: start: 20111228, end: 20120102
  2. REVLIMID [Suspect]
     Indication: MYELODYSPLASTIC SYNDROME
     Dosage: 25 MG, DAILY X 21 DAYS ON FOLLOWED X 7 DAYS OFF, PO
     Route: 048
     Dates: start: 20111228, end: 20120102
  3. FLUID (BARIUM SULFATE) (UNKNOWN) [Concomitant]
  4. METOPROLOL (METOPROLOL) (UNKNOWN) [Concomitant]
  5. LASIX (FUROSEMIDE) (UNKNOWN) [Concomitant]
  6. ALDACTONE (SPIRONOLACTONE) (UNKNOWN) [Concomitant]

REACTIONS (2)
  - Haemoglobin decreased [None]
  - Platelet count decreased [None]
